FAERS Safety Report 24398831 (Version 2)
Quarter: 2025Q3

REPORT INFORMATION
  Report Type: Report from Study
  Country: US (occurrence: US)
  Receive Date: 20241004
  Receipt Date: 20250803
  Transmission Date: 20251021
  Serious: Yes (Other)
  Sender: ALEXION PHARMACEUTICALS
  Company Number: US-AstraZeneca-CH-00714678A

PATIENT
  Age: 82 Year
  Sex: Female

DRUGS (1)
  1. ULTOMIRIS [Suspect]
     Active Substance: RAVULIZUMAB-CWVZ
     Route: 065

REACTIONS (13)
  - Cataract [Unknown]
  - Thrombosis [Unknown]
  - Arthralgia [Unknown]
  - Nasal neoplasm benign [Unknown]
  - Tooth injury [Unknown]
  - Platelet count decreased [Unknown]
  - Haemoglobin increased [Unknown]
  - Gout [Unknown]
  - Blood uric acid increased [Unknown]
  - Urinary incontinence [Unknown]
  - Hypertension [Unknown]
  - Peripheral swelling [Unknown]
  - Blood lactate dehydrogenase decreased [Unknown]
